FAERS Safety Report 5510830-0 (Version None)
Quarter: 2007Q4

REPORT INFORMATION
  Report Type: 
  Country: None (occurrence: None)
  Receive Date: 20071108
  Receipt Date: 20071105
  Transmission Date: 20080405
  Serious: Yes (Hospitalization, Other)
  Sender: FDA-Public Use
  Company Number: US-MERCK-0608USA05352

PATIENT
  Age: 46 Year
  Sex: Female
  Weight: 143 kg

DRUGS (24)
  1. FOSAMAX [Suspect]
     Indication: OSTEOPOROSIS
     Route: 048
     Dates: start: 20000101, end: 20050101
  2. [THERAPY UNSPECIFIED] [Concomitant]
     Indication: ASTHMA
     Route: 065
  3. PROZAC [Concomitant]
     Indication: DEPRESSION
     Route: 065
     Dates: start: 19960101
  4. FERROUS SULFATE [Concomitant]
     Route: 065
  5. WELLBUTRIN [Concomitant]
     Route: 065
  6. PREDNISONE [Concomitant]
     Indication: ASTHMA
     Route: 065
     Dates: start: 19870101
  7. PREDNISONE [Concomitant]
     Indication: CHRONIC OBSTRUCTIVE PULMONARY DISEASE
     Route: 065
     Dates: start: 19870101
  8. CORTICOSTEROIDS (UNSPECIFIED) [Concomitant]
     Route: 065
     Dates: start: 19870101, end: 20070801
  9. ALBUTEROL [Concomitant]
     Indication: ASTHMA
     Dates: start: 19890101
  10. ALBUTEROL [Concomitant]
     Indication: CHRONIC OBSTRUCTIVE PULMONARY DISEASE
     Dates: start: 19890101
  11. ATROVENT [Concomitant]
     Indication: ASTHMA
     Route: 065
     Dates: start: 19890101
  12. ATROVENT [Concomitant]
     Indication: CHRONIC OBSTRUCTIVE PULMONARY DISEASE
     Route: 065
     Dates: start: 19890101
  13. AZMACORT [Concomitant]
     Indication: ASTHMA
     Route: 065
     Dates: start: 19890101
  14. AZMACORT [Concomitant]
     Indication: CHRONIC OBSTRUCTIVE PULMONARY DISEASE
     Route: 065
     Dates: start: 19890101
  15. BECONASE [Concomitant]
     Indication: RHINITIS ALLERGIC
     Route: 065
     Dates: start: 19880101
  16. SINGULAIR [Concomitant]
     Indication: ASTHMA
     Route: 048
     Dates: start: 20000101
  17. SINGULAIR [Concomitant]
     Indication: CHRONIC OBSTRUCTIVE PULMONARY DISEASE
     Route: 048
     Dates: start: 20000101
  18. NEURONTIN [Concomitant]
     Indication: TRIGEMINAL NEURALGIA
     Route: 065
     Dates: start: 19960101
  19. TEGRETOL [Concomitant]
     Indication: TRIGEMINAL NEURALGIA
     Route: 065
     Dates: start: 19880101
  20. ADVAIR DISKUS 100/50 [Concomitant]
     Indication: ASTHMA
     Route: 065
     Dates: start: 20010101
  21. ADVAIR DISKUS 100/50 [Concomitant]
     Indication: CHRONIC OBSTRUCTIVE PULMONARY DISEASE
     Route: 065
     Dates: start: 20010101
  22. SYNTHROID [Concomitant]
     Indication: HYPOTHYROIDISM
     Route: 065
     Dates: start: 20000101
  23. METFORMIN [Concomitant]
     Indication: DIABETES MELLITUS
     Route: 065
     Dates: start: 20030101
  24. GLYBURIDE [Concomitant]
     Indication: DIABETES MELLITUS
     Route: 065
     Dates: start: 20030101

REACTIONS (12)
  - ASTHMA [None]
  - BRONCHOSPASM [None]
  - CELLULITIS [None]
  - CLUSTER HEADACHE [None]
  - COUGH [None]
  - DENTAL CARIES [None]
  - DIABETES MELLITUS [None]
  - IRON DEFICIENCY ANAEMIA [None]
  - OSTEONECROSIS [None]
  - SINUSITIS [None]
  - SYNCOPE [None]
  - TRIGEMINAL NEURALGIA [None]
